FAERS Safety Report 14777216 (Version 1)
Quarter: 2018Q2

REPORT INFORMATION
  Report Type: Spontaneous
  Country: FR (occurrence: FR)
  Receive Date: 20180419
  Receipt Date: 20180419
  Transmission Date: 20180711
  Serious: Yes (Hospitalization)
  Sender: FDA-Public Use
  Company Number: FR-MERCK KGAA-2046013

PATIENT
  Age: 79 Year
  Sex: Female

DRUGS (1)
  1. NOVOTHYROX [Suspect]
     Active Substance: LEVOTHYROXINE SODIUM
     Indication: PRODUCT USED FOR UNKNOWN INDICATION
     Dates: end: 20170906

REACTIONS (15)
  - Balance disorder [None]
  - Fear of disease [None]
  - Loss of personal independence in daily activities [None]
  - Fatigue [None]
  - Fall [None]
  - Depression [None]
  - Asthenia [None]
  - Head injury [None]
  - Disturbance in social behaviour [None]
  - Vitreous disorder [None]
  - Dizziness [None]
  - Partner stress [None]
  - Asthenia [None]
  - Anxiety [None]
  - Muscle spasms [None]

NARRATIVE: CASE EVENT DATE: 201707
